FAERS Safety Report 5960032-9 (Version None)
Quarter: 2008Q4

REPORT INFORMATION
  Report Type: 
  Country: None (occurrence: None)
  Receive Date: 20081120
  Receipt Date: 20081114
  Transmission Date: 20090506
  Serious: Yes (Hospitalization)
  Sender: FDA-Public Use
  Company Number: IL-GENENTECH-271672

PATIENT
  Age: 55 Year
  Sex: Male

DRUGS (3)
  1. RAPTIVA [Suspect]
     Indication: PSORIASIS
     Dosage: 1 MG/KG, 1/WEEK
     Route: 058
     Dates: start: 20080802
  2. NORMITEN [Suspect]
     Indication: ARRHYTHMIA
     Dosage: UNK
     Dates: end: 20080101
  3. SIMVASTATIN [Concomitant]
     Indication: DRUG USE FOR UNKNOWN INDICATION
     Dosage: UNK

REACTIONS (3)
  - ARRHYTHMIA [None]
  - GUTTATE PSORIASIS [None]
  - PSORIASIS [None]
